FAERS Safety Report 20445334 (Version 1)
Quarter: 2022Q1

REPORT INFORMATION
  Report Type: Other
  Country: US (occurrence: None)
  Receive Date: 20220208
  Receipt Date: 20220208
  Transmission Date: 20220423
  Serious: No
  Sender: FDA-Public Use
  Company Number: US-ROCHE-3013315

PATIENT
  Sex: Male

DRUGS (2)
  1. OCREVUS [Suspect]
     Active Substance: OCRELIZUMAB
     Indication: Multiple sclerosis
     Dosage: 21/JAN/2020, 21/JUL/2020, 12/JAN/2021, 13/JUL/2021
     Route: 042
     Dates: start: 20200114
  2. OCREVUS [Suspect]
     Active Substance: OCRELIZUMAB
     Route: 042

REACTIONS (1)
  - COVID-19 [Recovered/Resolved]
